FAERS Safety Report 4733683-7 (Version None)
Quarter: 2005Q3

REPORT INFORMATION
  Report Type: 
  Country: None (occurrence: None)
  Receive Date: 20050729
  Receipt Date: 20050707
  Transmission Date: 20060218
  Serious: Yes (Death, Hospitalization)
  Sender: FDA-Public Use
  Company Number: EWC050744903

PATIENT
  Age: 77 Year
  Sex: Female

DRUGS (9)
  1. FORTEO [Suspect]
     Indication: OSTEOPOROSIS
     Dosage: 20 UG
     Dates: start: 20040310
  2. ACETAMINOPHEN [Concomitant]
  3. CALCEVITA [Concomitant]
  4. HALDOL (HALOPERIDOL DECANOATE) [Concomitant]
  5. PRIMPERAN ELIXIR [Concomitant]
  6. IMPUGAN (FUROSEMIDE 0032601) [Concomitant]
  7. PREDNISOLONE [Concomitant]
  8. ZINACEF (CEFUOXIME SODIUM) [Concomitant]
  9. CORTIMYK [Concomitant]

REACTIONS (14)
  - ATRIAL FIBRILLATION [None]
  - CARDIAC DISORDER [None]
  - EJECTION FRACTION DECREASED [None]
  - HYPOXIA [None]
  - LUNG DISORDER [None]
  - MITRAL VALVE INCOMPETENCE [None]
  - MYOCARDIAL INFARCTION [None]
  - OXYGEN SATURATION DECREASED [None]
  - PNEUMONIA [None]
  - PULMONARY EMBOLISM [None]
  - RESPIRATORY ARREST [None]
  - RESPIRATORY FAILURE [None]
  - SOMNOLENCE [None]
  - SUDDEN DEATH [None]
